FAERS Safety Report 8975671 (Version 1)
Quarter: 2012Q4

REPORT INFORMATION
  Report Type: 
  Country: US (occurrence: US)
  Receive Date: 20121219
  Receipt Date: 20121219
  Transmission Date: 20130627
  Serious: No
  Sender: FDA-Public Use
  Company Number: US-AMGEN-USASP2012070915

PATIENT
  Age: 84 Year
  Sex: Female
  Weight: 43.36 kg

DRUGS (6)
  1. PROLIA [Suspect]
     Indication: OSTEOPOROSIS POSTMENOPAUSAL
     Dosage: 60 mg, q6mo
     Route: 058
     Dates: start: 20121023
  2. IRBESARTAN [Concomitant]
     Indication: HYPERTENSION
     Dosage: 300 mg, qd
     Route: 048
     Dates: start: 20060713
  3. SPIRONOLACTONE [Concomitant]
     Indication: HYPERTENSION
     Dosage: 25 mg, qd
     Route: 048
     Dates: start: 20071121
  4. ESOMEPRAZOLE [Concomitant]
     Indication: GASTROOESOPHAGEAL REFLUX DISEASE
     Dosage: 40 mg, qd
     Route: 048
     Dates: start: 20060713
  5. COREG CR [Concomitant]
     Indication: HYPERTENSION
     Dosage: 80 mg, qhs
     Route: 048
     Dates: start: 20071121
  6. DOXAZOSIN [Concomitant]
     Indication: HYPERTENSION
     Dosage: 8 mg, qhs
     Route: 048
     Dates: start: 20060713

REACTIONS (5)
  - Fatigue [Recovered/Resolved]
  - Hypersomnia [Unknown]
  - Decreased appetite [Recovered/Resolved]
  - Hypotension [Unknown]
  - Hypovolaemia [Recovered/Resolved]
